FAERS Safety Report 5415666-7 (Version None)
Quarter: 2007Q3

REPORT INFORMATION
  Report Type: 
  Country: None (occurrence: None)
  Receive Date: 20070815
  Receipt Date: 20061030
  Transmission Date: 20080115
  Serious: No
  Sender: FDA-Public Use
  Company Number: US-BRISTOL-MYERS SQUIBB COMPANY-13560321

PATIENT
  Age: 32 Year
  Sex: Male

DRUGS (1)
  1. TEQUIN [Suspect]
     Indication: PROSTATITIS

REACTIONS (1)
  - ANXIETY [None]
